FAERS Safety Report 19057082 (Version 5)
Quarter: 2021Q3

REPORT INFORMATION
  Report Type: Report from Study
  Country: US (occurrence: US)
  Receive Date: 20210324
  Receipt Date: 20210709
  Transmission Date: 20211014
  Serious: No
  Sender: FDA-Public Use
  Company Number: NVSC2021US063002

PATIENT
  Sex: Female

DRUGS (2)
  1. COSENTYX [Suspect]
     Active Substance: SECUKINUMAB
     Indication: RHEUMATOID ARTHRITIS
     Dosage: 150 MG, QMO
     Route: 058
     Dates: start: 202102
  2. COSENTYX [Suspect]
     Active Substance: SECUKINUMAB
     Indication: PSORIATIC ARTHROPATHY
     Dosage: 150 MG, QMO
     Route: 058

REACTIONS (8)
  - Skin discolouration [Unknown]
  - Fatigue [Unknown]
  - Drug ineffective for unapproved indication [Unknown]
  - Stomach mass [Unknown]
  - Peripheral swelling [Unknown]
  - Scar [Unknown]
  - Product use in unapproved indication [Unknown]
  - Hypersomnia [Unknown]
